FAERS Safety Report 9722457 (Version 2)
Quarter: 2014Q1

REPORT INFORMATION
  Report Type: Report from Study
  Country: JP (occurrence: JP)
  Receive Date: 20131202
  Receipt Date: 20140213
  Transmission Date: 20141002
  Serious: Yes (Death, Other)
  Sender: FDA-Public Use
  Company Number: PHHY2013JP139022

PATIENT
  Age: 77 Year
  Sex: Female

DRUGS (3)
  1. AFINITOR [Suspect]
     Indication: PANCREATIC NEUROENDOCRINE TUMOUR
     Dosage: 5 MG, DAILY
     Route: 048
     Dates: start: 20130215
  2. SANDOSTATIN [Concomitant]
     Indication: PANCREATIC NEUROENDOCRINE TUMOUR
     Route: 058
  3. CISPLATIN W/IRINOTECAN [Concomitant]
     Indication: PANCREATIC NEUROENDOCRINE TUMOUR

REACTIONS (6)
  - Malignant neoplasm progression [Fatal]
  - C-reactive protein increased [Unknown]
  - Aspartate aminotransferase increased [Unknown]
  - Gamma-glutamyltransferase increased [Unknown]
  - Blood alkaline phosphatase increased [Unknown]
  - Blood lactate dehydrogenase increased [Unknown]
